FAERS Safety Report 8205669-1 (Version None)
Quarter: 2012Q1

REPORT INFORMATION
  Report Type: 
  Country: None (occurrence: None)
  Receive Date: 20120313
  Receipt Date: 20120227
  Transmission Date: 20120608
  Serious: No
  Sender: FDA-Public Use
  Company Number: US-ENDO PHARMACEUTICALS INC.-PERD20120003

PATIENT
  Sex: Male
  Weight: 77.18 kg

DRUGS (5)
  1. PERCODAN-DEMI [Suspect]
     Indication: PAIN IN EXTREMITY
  2. MIRTAZAPINE [Concomitant]
     Indication: DEPRESSION
     Route: 048
     Dates: start: 20110101
  3. PERCODAN-DEMI [Suspect]
     Indication: BACK PAIN
     Dosage: UNK
     Route: 048
     Dates: start: 20110101
  4. CHANTIX [Concomitant]
     Indication: EX-TOBACCO USER
     Route: 048
     Dates: start: 20110511, end: 20110628
  5. PRILOSEC [Concomitant]
     Indication: GASTROOESOPHAGEAL REFLUX DISEASE
     Dosage: UNK
     Route: 048

REACTIONS (1)
  - DRUG INEFFECTIVE [None]
